FAERS Safety Report 15942243 (Version 1)
Quarter: 2019Q1

REPORT INFORMATION
  Report Type: Spontaneous
  Country: NZ (occurrence: NZ)
  Receive Date: 20190210
  Receipt Date: 20190210
  Transmission Date: 20190417
  Serious: Yes (Other)
  Sender: FDA-Public Use
  Company Number: NZ-BIOGEN-2019BI00693293

PATIENT
  Age: 5 Week
  Sex: Male

DRUGS (1)
  1. TYSABRI [Suspect]
     Active Substance: NATALIZUMAB
     Indication: MATERNAL EXPOSURE TIMING UNSPECIFIED
     Dosage: STOPPED IN THE FIRST TRIMESTER THEN RESUMED FROM 12 WEEKS^ GESTATIONS TO 32 WEEKS^ GESTATION THEN...
     Route: 064

REACTIONS (3)
  - Foetal exposure during pregnancy [Unknown]
  - Tibia fracture [Unknown]
  - Femur fracture [Unknown]
